FAERS Safety Report 13078989 (Version 1)
Quarter: 2017Q1

REPORT INFORMATION
  Report Type: Spontaneous
  Country: FR (occurrence: FR)
  Receive Date: 20170102
  Receipt Date: 20170102
  Transmission Date: 20170428
  Serious: Yes (Other)
  Sender: FDA-Public Use
  Company Number: PHHY2016FR180278

PATIENT
  Age: 45 Year
  Sex: Male

DRUGS (1)
  1. RITALINE LP [Suspect]
     Active Substance: METHYLPHENIDATE HYDROCHLORIDE
     Indication: PRODUCT USED FOR UNKNOWN INDICATION
     Dosage: 4 DF, BID (4 CAPSULES IN THE SAME SYRINGE, TWICE DAILY)
     Route: 042

REACTIONS (1)
  - Acute psychosis [Unknown]
